FAERS Safety Report 7617100-5 (Version None)
Quarter: 2011Q3

REPORT INFORMATION
  Report Type: 
  Country: None (occurrence: None)
  Receive Date: 20110718
  Receipt Date: 20110706
  Transmission Date: 20111222
  Serious: Yes (Other)
  Sender: FDA-Public Use
  Company Number: BR-BAYER-2011-058804

PATIENT
  Age: 58 Year
  Sex: Female
  Weight: 70 kg

DRUGS (2)
  1. UNESPECIFIED DRUG [Concomitant]
     Indication: BLOOD PRESSURE ABNORMAL
  2. ANGELIQ [Suspect]
     Indication: MENOPAUSAL SYMPTOMS
     Dosage: UNK
     Route: 048
     Dates: start: 20110629

REACTIONS (13)
  - PYREXIA [None]
  - RHINORRHOEA [None]
  - DRY MOUTH [None]
  - WEIGHT DECREASED [None]
  - COUGH [None]
  - ORAL DISCHARGE [None]
  - INFLUENZA LIKE ILLNESS [None]
  - DYSPNOEA AT REST [None]
  - HAEMOPTYSIS [None]
  - HEADACHE [None]
  - SUFFOCATION FEELING [None]
  - OROPHARYNGEAL PAIN [None]
  - EYE DISCHARGE [None]
